FAERS Safety Report 8766121 (Version 2)
Quarter: 2013Q4

REPORT INFORMATION
  Report Type: Report from Study
  Country: JP (occurrence: JP)
  Receive Date: 20120904
  Receipt Date: 20131108
  Transmission Date: 20140711
  Serious: Yes (Other)
  Sender: FDA-Public Use
  Company Number: JP-009507513-2012SP025009

PATIENT
  Age: 70 Year
  Sex: Female
  Weight: 53 kg

DRUGS (12)
  1. RIBAVIRIN [Suspect]
     Indication: HEPATITIS C
     Dosage: 400 MG, QD
     Route: 048
     Dates: start: 20120303, end: 20120321
  2. RIBAVIRIN [Suspect]
     Dosage: 200 MG, QD
     Route: 048
     Dates: start: 20120322
  3. RIBAVIRIN [Suspect]
     Dosage: 400 MG, QD
     Route: 048
     Dates: end: 20120620
  4. RIBAVIRIN [Suspect]
     Dosage: 600 MG, QD
     Dates: start: 20120621, end: 20120809
  5. PEGINTRON [Suspect]
     Indication: HEPATITIS C
     Dosage: 1.5 ?G/KG, QW
     Route: 058
     Dates: start: 20120303, end: 20120809
  6. TELAVIC [Suspect]
     Indication: HEPATITIS C
     Dosage: 1500 MG, QD
     Route: 048
     Dates: start: 20120303
  7. CLARITIN REDITABS [Concomitant]
     Indication: PROPHYLAXIS
     Dosage: 10 MG, QD
     Route: 048
  8. MAINTATE [Concomitant]
     Indication: HYPERTENSION
     Dosage: PSUT(OTHER PURPOSES)
     Route: 048
  9. MICOMBI [Concomitant]
     Indication: HYPERTENSION
     Dosage: 1 DF, QD
     Route: 048
  10. LIVALO [Concomitant]
     Indication: HYPERLIPIDAEMIA
     Dosage: FORMULATION: POR
     Route: 048
  11. EPADEL S [Concomitant]
     Indication: HYPERLIPIDAEMIA
     Dosage: 1800 MG, QD FORMULATION: POR
     Route: 048
  12. SODIUM FERROUS CITRATE [Concomitant]
     Indication: IRON DEFICIENCY ANAEMIA
     Dosage: 100 MG, QD, FORMULATION: POR
     Route: 048

REACTIONS (3)
  - Anaemia [Not Recovered/Not Resolved]
  - Anaemia [Not Recovered/Not Resolved]
  - Anaemia [Not Recovered/Not Resolved]
